FAERS Safety Report 4892304-3 (Version None)
Quarter: 2006Q1

REPORT INFORMATION
  Report Type: 
  Country: None (occurrence: None)
  Receive Date: 20060125
  Receipt Date: 20060125
  Transmission Date: 20060701
  Serious: Yes (Other)
  Sender: FDA-Public Use
  Company Number: None

PATIENT
  Age: 51 Year
  Sex: Female
  Weight: 69.4003 kg

DRUGS (2)
  1. TELITHROMYCIN [Suspect]
     Indication: COUGH
     Dosage: 400 MG TWICE A DAY X 5 D ORAL
     Route: 048
     Dates: start: 20050330, end: 20050403
  2. TELITHROMYCIN [Suspect]
     Indication: RHINORRHOEA
     Dosage: 400 MG TWICE A DAY X 5 D ORAL
     Route: 048
     Dates: start: 20050330, end: 20050403

REACTIONS (6)
  - ASCITES [None]
  - HEPATIC ATROPHY [None]
  - HEPATIC ENZYME INCREASED [None]
  - HEPATIC FUNCTION ABNORMAL [None]
  - JAUNDICE [None]
  - LIVER TRANSPLANT [None]
